FAERS Safety Report 23669939 (Version 1)
Quarter: 2024Q1

REPORT INFORMATION
  Report Type: Spontaneous
  Country: US (occurrence: US)
  Receive Date: 20240325
  Receipt Date: 20240325
  Transmission Date: 20240410
  Serious: No
  Sender: FDA-Public Use
  Company Number: US-PFIZER INC-202400070857

PATIENT
  Age: 50 Year
  Sex: Female

DRUGS (22)
  1. XELJANZ XR [Suspect]
     Active Substance: TOFACITINIB CITRATE
     Dosage: 11 MG, DAILY
     Route: 048
     Dates: start: 2012
  2. ACETAMINOPHEN\CODEINE PHOSPHATE [Concomitant]
     Active Substance: ACETAMINOPHEN\CODEINE PHOSPHATE
     Dosage: 300 MG
  3. VITAMIN B12 [Concomitant]
     Active Substance: CYANOCOBALAMIN
     Dosage: 1000 UG
  4. CELEBREX [Concomitant]
     Active Substance: CELECOXIB
     Dosage: 100 MG
  5. DULOXETINE [Concomitant]
     Active Substance: DULOXETINE
     Dosage: 20 MG
  6. FIBER [Concomitant]
     Dosage: 625 MG
  7. FOLIC ACID [Concomitant]
     Active Substance: FOLIC ACID
     Dosage: 0.4 MG
  8. GABAPENTIN [Concomitant]
     Active Substance: GABAPENTIN
     Dosage: 300 MG
  9. IRON [Concomitant]
     Active Substance: IRON
     Dosage: 18 MG
  10. LYSINE [Concomitant]
     Active Substance: LYSINE
     Dosage: 1000 MG
  11. ADULT CITREX CV MULTIVITAMIN + ZINC [Concomitant]
  12. NIACIN [Concomitant]
     Active Substance: NIACIN
     Dosage: 250 MG
  13. OLMESARTAN MEDOXOMIL [Concomitant]
     Active Substance: OLMESARTAN MEDOXOMIL
     Dosage: 20 MG
  14. PANTOPRAZOLE [Concomitant]
     Active Substance: PANTOPRAZOLE
     Dosage: 40 MG
  15. PREDNISONE ACETATE [Concomitant]
     Active Substance: PREDNISONE ACETATE
     Dosage: 1 MG
  16. MINERALS\VITAMINS [Concomitant]
     Active Substance: MINERALS\VITAMINS
  17. SUMATRIPTAN SUCCINATE [Concomitant]
     Active Substance: SUMATRIPTAN SUCCINATE
     Dosage: 25 MG
  18. TOPIRAMATE [Concomitant]
     Active Substance: TOPIRAMATE
     Dosage: 100 MG
  19. ASCORBIC ACID [Concomitant]
     Active Substance: ASCORBIC ACID
     Dosage: 1000 MG
  20. VITAMIN D2 [Concomitant]
     Active Substance: ERGOCALCIFEROL
     Dosage: 1250 UG
  21. ZADITOR [Concomitant]
     Active Substance: KETOTIFEN FUMARATE
     Dosage: 0.025 %
  22. LEVOCABASTINE HYDROCHLORIDE [Suspect]
     Active Substance: LEVOCABASTINE HYDROCHLORIDE
     Dosage: 10 MG

REACTIONS (1)
  - Condition aggravated [Not Recovered/Not Resolved]

NARRATIVE: CASE EVENT DATE: 20240101
